FAERS Safety Report 5732926-0 (Version None)
Quarter: 2008Q2

REPORT INFORMATION
  Report Type: 
  Country: None (occurrence: None)
  Receive Date: 20080509
  Receipt Date: 20080403
  Transmission Date: 20081010
  Serious: No
  Sender: FDA-Public Use
  Company Number: A0719175A

PATIENT
  Age: 79 Year
  Sex: Female

DRUGS (3)
  1. COREG CR [Suspect]
     Dosage: 40MG PER DAY
     Route: 048
     Dates: start: 20071101
  2. PRAVACHOL [Concomitant]
  3. XANAX [Concomitant]

REACTIONS (2)
  - EXERCISE TOLERANCE DECREASED [None]
  - VENTRICULAR EXTRASYSTOLES [None]
